FAERS Safety Report 4686438-6 (Version None)
Quarter: 2005Q2

REPORT INFORMATION
  Report Type: 
  Country: None (occurrence: None)
  Receive Date: 20050606
  Receipt Date: 20050520
  Transmission Date: 20051028
  Serious: Yes (Life-Threatening, Hospitalization)
  Sender: FDA-Public Use
  Company Number: 2005PL000038

PATIENT
  Age: 65 Year
  Sex: Male

DRUGS (2)
  1. ALLOPURINOL [Suspect]
     Indication: HYPERURICAEMIA
     Dosage: 300 MG; QD; PO
     Route: 048
  2. ENALAPRIL MALEATE [Concomitant]

REACTIONS (6)
  - BLOOD PRESSURE FLUCTUATION [None]
  - CARDIAC ARREST [None]
  - DYSPHAGIA [None]
  - GUILLAIN-BARRE SYNDROME [None]
  - PARALYSIS FLACCID [None]
  - RASH PRURITIC [None]
